FAERS Safety Report 11093553 (Version 1)
Quarter: 2015Q2

REPORT INFORMATION
  Report Type: Spontaneous
  Country: RO (occurrence: RO)
  Receive Date: 20150506
  Receipt Date: 20150506
  Transmission Date: 20150821
  Serious: Yes (Hospitalization)
  Sender: FDA-Public Use
  Company Number: RO-SA-2015SA054648

PATIENT
  Age: 54 Year
  Sex: Male

DRUGS (8)
  1. RITUXIMAB [Suspect]
     Active Substance: RITUXIMAB
     Indication: CHRONIC LYMPHOCYTIC LEUKAEMIA
     Route: 065
  2. METHYLPREDNISOLONE. [Suspect]
     Active Substance: METHYLPREDNISOLONE
     Indication: CHRONIC LYMPHOCYTIC LEUKAEMIA
     Dosage: FOR 5 DAYS PER MONTH
     Route: 065
  3. FLUDARABINE PHOSPHATE. [Suspect]
     Active Substance: FLUDARABINE PHOSPHATE
     Indication: CHRONIC LYMPHOCYTIC LEUKAEMIA
     Route: 065
  4. VINCRISTINE [Suspect]
     Active Substance: VINCRISTINE
     Indication: CHRONIC LYMPHOCYTIC LEUKAEMIA
     Route: 065
  5. CYCLOPHOSPHAMIDE. [Suspect]
     Active Substance: CYCLOPHOSPHAMIDE
     Indication: CHRONIC LYMPHOCYTIC LEUKAEMIA
     Route: 065
  6. DOXORUBICIN [Suspect]
     Active Substance: DOXORUBICIN
     Indication: CHRONIC LYMPHOCYTIC LEUKAEMIA
     Route: 065
  7. PREDNISOLONE. [Suspect]
     Active Substance: PREDNISOLONE
     Indication: CHRONIC LYMPHOCYTIC LEUKAEMIA
     Route: 065
  8. CLADRIBINE. [Suspect]
     Active Substance: CLADRIBINE
     Indication: CHRONIC LYMPHOCYTIC LEUKAEMIA
     Dosage: FOR 3 DAYS PER MONTH
     Route: 065

REACTIONS (26)
  - Cough [Recovered/Resolved]
  - Glossitis [Recovered/Resolved]
  - Pseudomonas infection [Unknown]
  - Sepsis [Recovering/Resolving]
  - Pyrexia [Recovered/Resolved]
  - Tongue necrosis [Recovered/Resolved]
  - Chest pain [Recovered/Resolved]
  - Lymphadenopathy [Recovering/Resolving]
  - Oxygen saturation decreased [Unknown]
  - Erysipelothrix infection [Unknown]
  - Papule [Recovered/Resolved]
  - Bronchopneumonia [Recovering/Resolving]
  - Chills [Recovered/Resolved]
  - Blood fibrinogen increased [Unknown]
  - Sputum purulent [Recovered/Resolved]
  - Dyspnoea [Recovered/Resolved]
  - Red blood cell sedimentation rate increased [Unknown]
  - Soft tissue infection [Unknown]
  - Crepitations [Recovered/Resolved]
  - Hepatitis B [Unknown]
  - Tongue ulceration [Recovered/Resolved]
  - Escherichia infection [Unknown]
  - Herpes simplex [Recovering/Resolving]
  - Pleural effusion [Unknown]
  - Pulmonary congestion [Unknown]
  - Oral herpes [Recovered/Resolved]
